FAERS Safety Report 17916741 (Version 1)
Quarter: 2020Q2

REPORT INFORMATION
  Report Type: Spontaneous
  Country: CA (occurrence: CA)
  Receive Date: 20200619
  Receipt Date: 20200619
  Transmission Date: 20200714
  Serious: Yes (Other)
  Sender: FDA-Public Use
  Company Number: CA-ACCORD-185873

PATIENT
  Age: 61 Year
  Sex: Male
  Weight: 80 kg

DRUGS (8)
  1. PREDNISONE. [Concomitant]
     Active Substance: PREDNISONE
  2. DIAMICRON [Concomitant]
     Active Substance: GLICLAZIDE
     Dosage: FREQUENCY: 2 EVERY 1 DAYS
  3. PARACETAMOL [Concomitant]
     Active Substance: ACETAMINOPHEN
     Route: 048
  4. HUMULIN NOS [Concomitant]
     Active Substance: INSULIN HUMAN
     Indication: DIABETES MELLITUS
     Dosage: AS REQUIRED
  5. MEZAVANT [Concomitant]
     Active Substance: MESALAMINE
     Dosage: TABLET (DELAYED AND EXTENDED RELEASE),2 EVERY 1 DAYS
  6. OXAZEPAM. [Concomitant]
     Active Substance: OXAZEPAM
  7. AMLODIPINE [Suspect]
     Active Substance: AMLODIPINE BESYLATE
     Indication: PRODUCT USED FOR UNKNOWN INDICATION
     Dosage: FREQUENCY: EVERY 1 DAYS
     Route: 042
  8. JARDIANCE [Concomitant]
     Active Substance: EMPAGLIFLOZIN
     Dosage: FREQUENCY: EVERY 1 DAYS

REACTIONS (4)
  - Abdominal discomfort [Unknown]
  - Colitis [Unknown]
  - White blood cell count increased [Unknown]
  - Lymphocytosis [Unknown]
